FAERS Safety Report 7643046-2 (Version None)
Quarter: 2011Q3

REPORT INFORMATION
  Report Type: 
  Country: None (occurrence: None)
  Receive Date: 20110728
  Receipt Date: 20110719
  Transmission Date: 20111222
  Serious: Yes (Other)
  Sender: FDA-Public Use
  Company Number: CA-ASTRAZENECA-2011SE42578

PATIENT
  Age: 65 Year
  Sex: Female
  Weight: 99.8 kg

DRUGS (2)
  1. VIMOVO [Suspect]
     Indication: OSTEOARTHRITIS
     Dosage: 375/20 MG, DAILY
     Route: 048
     Dates: start: 20110630, end: 20110630
  2. VIMOVO [Suspect]
     Indication: RHEUMATOID ARTHRITIS
     Dosage: 375/20 MG, DAILY
     Route: 048
     Dates: start: 20110630, end: 20110630

REACTIONS (1)
  - TRANSIENT ISCHAEMIC ATTACK [None]
